FAERS Safety Report 23070793 (Version 3)
Quarter: 2025Q3

REPORT INFORMATION
  Report Type: Spontaneous
  Country: US (occurrence: US)
  Receive Date: 20231016
  Receipt Date: 20250714
  Transmission Date: 20251020
  Serious: No
  Sender: PFIZER
  Company Number: US-PFIZER INC-202300327724

PATIENT
  Age: 52 Year
  Sex: Female

DRUGS (2)
  1. XELJANZ [Suspect]
     Active Substance: TOFACITINIB CITRATE
     Dosage: 5 MG, 1X/DAY
     Route: 048
     Dates: start: 20220517
  2. XELJANZ [Suspect]
     Active Substance: TOFACITINIB CITRATE
     Dosage: 5 MG, 2X/DAY
     Route: 048

REACTIONS (10)
  - Arthralgia [Unknown]
  - Pain [Unknown]
  - Musculoskeletal discomfort [Unknown]
  - Drug ineffective [Unknown]
  - Joint range of motion decreased [Unknown]
  - Articular calcification [Unknown]
  - Headache [Unknown]
  - Condition aggravated [Not Recovered/Not Resolved]
  - Stress [Not Recovered/Not Resolved]
  - Off label use [Unknown]

NARRATIVE: CASE EVENT DATE: 20230901
